FAERS Safety Report 4690038-1 (Version None)
Quarter: 2005Q2

REPORT INFORMATION
  Report Type: 
  Country: None (occurrence: None)
  Receive Date: 20050614
  Receipt Date: 20050602
  Transmission Date: 20051028
  Serious: Yes (Other)
  Sender: FDA-Public Use
  Company Number: 2005082372

PATIENT
  Age: 80 Year
  Sex: Male

DRUGS (6)
  1. DILANTIN KAPSEAL [Suspect]
     Indication: EPILEPSY
     Dosage: 200 MG (100 MG, 2 IN 1 D), ORAL
     Route: 048
     Dates: start: 19990101
  2. ASAPHEN (ACETYLSALICYLIC ACID) [Concomitant]
  3. NORVASC [Concomitant]
  4. EFFEXOR [Concomitant]
  5. PLAVIX (CLOPIDGREL SULFATE) [Concomitant]
  6. TYLENOL [Concomitant]

REACTIONS (1)
  - NARCOLEPSY [None]
